FAERS Safety Report 8262186-0 (Version None)
Quarter: 2012Q2

REPORT INFORMATION
  Report Type: 
  Country: None (occurrence: None)
  Receive Date: 20120405
  Receipt Date: 20120328
  Transmission Date: 20120825
  Serious: Yes (Other)
  Sender: FDA-Public Use
  Company Number: DE-JNJFOC-20120313193

PATIENT
  Sex: Male

DRUGS (1)
  1. ZYTIGA [Suspect]
     Indication: PROSTATE CANCER
     Route: 048

REACTIONS (3)
  - THROMBOCYTOPENIA [None]
  - SPLENOMEGALY [None]
  - NORMOCHROMIC NORMOCYTIC ANAEMIA [None]
